FAERS Safety Report 7364657-8 (Version None)
Quarter: 2011Q1

REPORT INFORMATION
  Report Type: 
  Country: None (occurrence: None)
  Receive Date: 20110321
  Receipt Date: 20110314
  Transmission Date: 20110831
  Serious: Yes (Hospitalization, Disabling)
  Sender: FDA-Public Use
  Company Number: JP-SHIRE-SPV1-2010-02172

PATIENT
  Age: 59 Year
  Sex: Female

DRUGS (23)
  1. LASIX [Concomitant]
     Dosage: 40 MG, UNKNOWN
     Dates: start: 20101213, end: 20101220
  2. LASIX [Concomitant]
     Dosage: 20 MG, UNKNOWN
     Route: 048
     Dates: start: 20101221
  3. MUCODYNE [Concomitant]
     Indication: RHINITIS ALLERGIC
     Dosage: 1500 MG, OTHER, DAILY
     Route: 048
     Dates: start: 20101014, end: 20101201
  4. SALOBEL [Concomitant]
     Dosage: 100 MG, UNKNOWN
     Route: 048
     Dates: start: 20110201
  5. ARGAMATE [Concomitant]
     Indication: HYPERKALAEMIA
     Dosage: 75 G, UNKNOWN
     Route: 048
     Dates: start: 20100616, end: 20101201
  6. ADALAT CC [Concomitant]
     Dosage: 20 MG, UNKNOWN
     Route: 048
     Dates: start: 20101209
  7. ADALAT CC [Concomitant]
     Dosage: 20 MG, UNKNOWN
     Route: 048
     Dates: start: 20110126
  8. SALOBEL [Concomitant]
     Dosage: 100 MG, UNKNOWN
     Route: 065
     Dates: start: 20101216, end: 20101222
  9. RENIVACE [Concomitant]
     Dosage: 2.5 MG, UNKNOWN
     Route: 048
     Dates: start: 20101202, end: 20101215
  10. MEVALOTIN [Concomitant]
     Indication: HYPERLIPIDAEMIA
     Dosage: 10 MG, UNKNOWN
     Route: 048
     Dates: start: 20070531
  11. LASIX [Concomitant]
     Indication: HYPERTENSION
     Dosage: 60 MG, UNKNOWN
     Route: 048
     Dates: start: 20081007, end: 20101201
  12. ALLEGRA [Concomitant]
     Indication: RHINITIS ALLERGIC
     Dosage: 120 MG, OTHER, DAILY
     Route: 048
     Dates: start: 20101014, end: 20110202
  13. PARIET [Concomitant]
     Indication: PROPHYLAXIS AGAINST GASTROINTESTINAL ULCER
     Dosage: 10 MG, UNKNOWN
     Route: 048
     Dates: start: 20080108
  14. ARGAMATE [Concomitant]
     Dosage: 25 MG, UNKNOWN
     Route: 048
     Dates: start: 20101217, end: 20101218
  15. MUCODYNE [Concomitant]
     Dosage: 750 MG, OTHER, DAILY
     Route: 048
     Dates: start: 20101202, end: 20110202
  16. RENIVACE [Concomitant]
     Indication: HYPERTENSION
     Dosage: 5 MG, UNKNOWN
     Route: 048
     Dates: start: 20070605, end: 20101201
  17. ARTIST [Concomitant]
     Indication: HYPERTENSION
     Dosage: 10 MG, UNKNOWN
     Route: 048
     Dates: start: 20070605, end: 20101201
  18. ARTIST [Concomitant]
     Dosage: 5 MG, UNKNOWN
     Route: 048
     Dates: start: 20101202
  19. SALOBEL [Concomitant]
     Indication: HYPERURICAEMIA
     Dosage: 100 MG, UNKNOWN
     Route: 048
     Dates: start: 20070531, end: 20101201
  20. LANTHANUM CARBONATE [Suspect]
     Indication: HYPERPHOSPHATAEMIA
     Dosage: 750 MG, OTHER, TOTAL DAILY DOSE
     Route: 048
     Dates: start: 20101108, end: 20101127
  21. ADALAT CC [Concomitant]
     Indication: HYPERTENSION
     Dosage: 20 MG, UNKNOWN
     Route: 048
     Dates: start: 20070531, end: 20101202
  22. ARGAMATE [Concomitant]
     Dosage: 75 MG, UNKNOWN
     Route: 048
     Dates: start: 20101220, end: 20110102
  23. OLMETEC [Concomitant]
     Indication: PRODUCT USED FOR UNKNOWN INDICATION
     Dosage: 20 MG, UNKNOWN
     Dates: start: 20101216, end: 20101230

REACTIONS (1)
  - VISUAL IMPAIRMENT [None]
